FAERS Safety Report 12547482 (Version 1)
Quarter: 2016Q3

REPORT INFORMATION
  Report Type: Spontaneous
  Country: FR (occurrence: FR)
  Receive Date: 20160712
  Receipt Date: 20160712
  Transmission Date: 20161109
  Serious: Yes (Other)
  Sender: FDA-Public Use
  Company Number: FR-ROCHE-1791765

PATIENT
  Age: 50 Year
  Sex: Female

DRUGS (22)
  1. INEXIUM [Concomitant]
     Active Substance: ESOMEPRAZOLE
     Dosage: 40 MG 1/DAY
     Route: 065
  2. PREDNISONE. [Concomitant]
     Active Substance: PREDNISONE
     Dosage: 5 MG 2/DAY
     Route: 065
  3. EZETROL [Concomitant]
     Active Substance: EZETIMIBE
     Dosage: 10 MG 1/DAY
     Route: 065
  4. CELLCEPT [Suspect]
     Active Substance: MYCOPHENOLATE MOFETIL\MYCOPHENOLATE MOFETIL HYDROCHLORIDE
     Indication: INTERSTITIAL LUNG DISEASE
     Route: 065
     Dates: start: 2008
  5. CORTANCYL [Concomitant]
     Active Substance: PREDNISONE
  6. MABTHERA [Suspect]
     Active Substance: RITUXIMAB
     Route: 042
     Dates: start: 201507
  7. LERCAN [Concomitant]
     Active Substance: LERCANIDIPINE
     Dosage: 10 MG 1/DAY
     Route: 065
  8. SOLU-MEDROL [Concomitant]
     Active Substance: METHYLPREDNISOLONE SODIUM SUCCINATE
  9. MABTHERA [Suspect]
     Active Substance: RITUXIMAB
     Route: 042
     Dates: start: 201310
  10. MABTHERA [Suspect]
     Active Substance: RITUXIMAB
     Route: 042
     Dates: start: 201408
  11. MABTHERA [Suspect]
     Active Substance: RITUXIMAB
     Route: 042
     Dates: start: 201501
  12. LASILIX [Concomitant]
     Active Substance: FUROSEMIDE
     Dosage: 20 MG 1/DAY
     Route: 065
  13. MABTHERA [Suspect]
     Active Substance: RITUXIMAB
     Indication: INTERSTITIAL LUNG DISEASE
     Route: 042
     Dates: start: 201101
  14. MABTHERA [Suspect]
     Active Substance: RITUXIMAB
     Route: 042
     Dates: start: 201102
  15. REFRESH CELLUVISC [Concomitant]
     Active Substance: CARBOXYMETHYLCELLULOSE SODIUM
     Dosage: 1% AT 1 DROP THREE TIMES PER DAY
     Route: 065
  16. LACRIGEL (FRANCE) [Concomitant]
     Dosage: 0.2% AT ONE APPLICATION/DAY
     Route: 065
  17. MABTHERA [Suspect]
     Active Substance: RITUXIMAB
     Route: 042
     Dates: start: 201407
  18. KARDEGIC [Concomitant]
     Active Substance: ASPIRIN LYSINE
     Dosage: 160 MG 1/DAY
     Route: 065
  19. BACTRIM [Concomitant]
     Active Substance: SULFAMETHOXAZOLE\TRIMETHOPRIM
     Dosage: 400 MG 1/DAY
     Route: 065
  20. CACIT D3 [Concomitant]
     Active Substance: CALCIUM\CHOLECALCIFEROL
     Dosage: 500 MG 2/DAY
     Route: 065
  21. DERMOVAL (FRANCE) [Concomitant]
     Dosage: CREAM AT ONE APPLICATION TWICE PER DAY
     Route: 065
  22. MABTHERA [Suspect]
     Active Substance: RITUXIMAB
     Route: 042
     Dates: start: 20160108, end: 20160108

REACTIONS (2)
  - Off label use [Unknown]
  - Hepatitis [Recovering/Resolving]

NARRATIVE: CASE EVENT DATE: 20160120
